FAERS Safety Report 7085181-6 (Version None)
Quarter: 2010Q4

REPORT INFORMATION
  Report Type: 
  Country: None (occurrence: None)
  Receive Date: 20101105
  Receipt Date: 20101025
  Transmission Date: 20110411
  Serious: Yes (Hospitalization, Other)
  Sender: FDA-Public Use
  Company Number: US-ELI_LILLY_AND_COMPANY-US201008005855

PATIENT
  Sex: Female
  Weight: 90.6 kg

DRUGS (22)
  1. FORTEO [Suspect]
     Indication: OSTEOPOROSIS
     Dosage: 20 UG, DAILY (1/D)
     Route: 058
     Dates: start: 20100216
  2. PLAQUINOL [Concomitant]
  3. LASIX [Concomitant]
  4. SYNTHROID [Concomitant]
  5. OMEPRAZOLE [Concomitant]
  6. FLUOXETINE [Concomitant]
  7. FLEXERIL [Concomitant]
  8. AMITRIPTYLINE HCL [Concomitant]
  9. GABAPENTIN [Concomitant]
  10. XANAX [Concomitant]
  11. MORPHINE [Concomitant]
  12. OXYCODONE HCL [Concomitant]
  13. METHOTREXATE [Concomitant]
  14. FOLATE [Concomitant]
  15. ANACIN [Concomitant]
  16. AMOXICILLIN [Concomitant]
  17. MULTI-VITAMIN [Concomitant]
  18. ASCORBIC ACID [Concomitant]
  19. CELEBREX [Concomitant]
  20. VITAMIN B [Concomitant]
  21. ISONIAZID [Concomitant]
  22. PYRIDOXIN [Concomitant]

REACTIONS (2)
  - FALL [None]
  - WRIST FRACTURE [None]
